FAERS Safety Report 10550501 (Version 2)
Quarter: 2014Q4

REPORT INFORMATION
  Report Type: Spontaneous
  Country: US (occurrence: US)
  Receive Date: 20141029
  Receipt Date: 20141029
  Transmission Date: 20150529
  Serious: No
  Sender: FDA-Public Use
  Company Number: US-TEVA-483593USA

PATIENT
  Age: 66 Year
  Sex: Female

DRUGS (1)
  1. PROVIGIL [Suspect]
     Active Substance: MODAFINIL

REACTIONS (2)
  - Nasopharyngitis [Recovering/Resolving]
  - Seasonal allergy [Recovering/Resolving]

NARRATIVE: CASE EVENT DATE: 201406
